FAERS Safety Report 5898037-9 (Version None)
Quarter: 2008Q3

REPORT INFORMATION
  Report Type: 
  Country: None (occurrence: None)
  Receive Date: 20080924
  Receipt Date: 20080924
  Transmission Date: 20090109
  Serious: Yes (Hospitalization)
  Sender: FDA-Public Use
  Company Number: None

PATIENT
  Sex: Male
  Weight: 114 kg

DRUGS (4)
  1. ELOXATIN [Suspect]
     Dosage: 116 MG
     Dates: end: 20080902
  2. FLUOROURACIL [Suspect]
     Dosage: 4338 MG
     Dates: end: 20080805
  3. ERBITUX [Suspect]
     Dosage: 1380 MG
     Dates: end: 20080902
  4. LEUCOVORIN CALCIUM [Suspect]
     Dosage: 1856 MG
     Dates: end: 20080902

REACTIONS (3)
  - INFUSION RELATED REACTION [None]
  - PHARYNGEAL OEDEMA [None]
  - SWOLLEN TONGUE [None]
